FAERS Safety Report 23283665 (Version 1)
Quarter: 2023Q4

REPORT INFORMATION
  Report Type: Spontaneous
  Country: CN (occurrence: CN)
  Receive Date: 20231211
  Receipt Date: 20231211
  Transmission Date: 20240110
  Serious: Yes (Death, Other)
  Sender: FDA-Public Use
  Company Number: CN-PFIZER INC-PV202300194325

PATIENT
  Age: 64 Year
  Sex: Female

DRUGS (2)
  1. SUNITINIB MALATE [Suspect]
     Active Substance: SUNITINIB MALATE
     Indication: Gastrointestinal stromal tumour
     Dosage: 37.5 MG/DAY AND 1 WEEK REST
     Dates: start: 20221010
  2. CARBOPLATIN [Concomitant]
     Active Substance: CARBOPLATIN
     Indication: Gastrointestinal stromal tumour
     Dosage: AUC 6, D1, Q21D
     Route: 042
     Dates: start: 20221010

REACTIONS (1)
  - Drug resistance [Fatal]
